FAERS Safety Report 14015163 (Version 1)
Quarter: 2017Q3

REPORT INFORMATION
  Report Type: Spontaneous
  Country: US (occurrence: None)
  Receive Date: 20170927
  Receipt Date: 20170927
  Transmission Date: 20171128
  Serious: No
  Sender: FDA-Public Use
  Company Number: None

PATIENT
  Age: 62 Year
  Sex: Female
  Weight: 117.48 kg

DRUGS (15)
  1. TIZANIDINE 4MG TABLETS [Suspect]
     Active Substance: TIZANIDINE HYDROCHLORIDE
     Indication: MUSCLE SPASMS
     Route: 048
     Dates: end: 20170801
  2. FERROUS SULFATE. [Concomitant]
     Active Substance: FERROUS SULFATE
  3. LOSARTAN/HCTZ [Concomitant]
     Active Substance: HYDROCHLOROTHIAZIDE\LOSARTAN
  4. FEXOFENADINE [Concomitant]
     Active Substance: FEXOFENADINE\FEXOFENADINE HYDROCHLORIDE
  5. NATURE MADE D3 [Concomitant]
  6. MELOXICAM. [Concomitant]
     Active Substance: MELOXICAM
  7. RANITIDINE. [Concomitant]
     Active Substance: RANITIDINE
  8. GABAPENTIN. [Concomitant]
     Active Substance: GABAPENTIN
  9. GARLIC. [Concomitant]
     Active Substance: GARLIC
  10. LOVASTATIN. [Concomitant]
     Active Substance: LOVASTATIN
  11. TRAMADOL. [Concomitant]
     Active Substance: TRAMADOL
  12. ASPRIN [Concomitant]
     Active Substance: ASPIRIN
  13. METFORMIN [Concomitant]
     Active Substance: METFORMIN HYDROCHLORIDE
  14. CYCLOBENZAPRINE. [Concomitant]
     Active Substance: CYCLOBENZAPRINE
  15. MAGNESIUM OXIDE. [Concomitant]
     Active Substance: MAGNESIUM OXIDE

REACTIONS (10)
  - Dizziness [None]
  - Loss of personal independence in daily activities [None]
  - Muscle spasms [None]
  - Fatigue [None]
  - Asthenia [None]
  - Formication [None]
  - Somnolence [None]
  - Headache [None]
  - Dry mouth [None]
  - Vision blurred [None]

NARRATIVE: CASE EVENT DATE: 20170801
